FAERS Safety Report 4504683-7 (Version None)
Quarter: 2004Q3

REPORT INFORMATION
  Report Type: 
  Country: None (occurrence: None)
  Receive Date: 20040927
  Receipt Date: 20040719
  Transmission Date: 20050211
  Serious: No
  Sender: FDA-Public Use
  Company Number: USA040773002

PATIENT
  Age: 34 Year
  Sex: Male
  Weight: 109 kg

DRUGS (4)
  1. STRATTERA [Suspect]
     Dosage: 40 MG SDAY
     Dates: start: 20040708
  2. ZOCOR [Concomitant]
  3. PREVACID [Concomitant]
  4. LEVAQUIN [Concomitant]

REACTIONS (3)
  - HYPERHIDROSIS [None]
  - PYREXIA [None]
  - SINUSITIS [None]
